FAERS Safety Report 5606504-8 (Version None)
Quarter: 2008Q1

REPORT INFORMATION
  Report Type: 
  Country: None (occurrence: None)
  Receive Date: 20080129
  Receipt Date: 20080122
  Transmission Date: 20080703
  Serious: Yes (Hospitalization)
  Sender: FDA-Public Use
  Company Number: A0704629A

PATIENT
  Age: 74 Year
  Sex: Male

DRUGS (6)
  1. AVODART [Suspect]
     Indication: BENIGN PROSTATIC HYPERPLASIA
     Dosage: .5MG PER DAY
     Route: 048
  2. DIABETES MEDICATION [Concomitant]
  3. METFORMIN HCL [Concomitant]
  4. CHOLESTEROL REDUCING AGENT [Concomitant]
  5. MEDICATION FOR HIGH BLOOD PRESSURE [Concomitant]
  6. INSULIN [Concomitant]

REACTIONS (4)
  - ADVERSE EVENT [None]
  - CATARACT [None]
  - DRUG INEFFECTIVE [None]
  - SEMEN VOLUME DECREASED [None]
